FAERS Safety Report 6230884-6 (Version None)
Quarter: 2009Q2

REPORT INFORMATION
  Report Type: 
  Country: None (occurrence: None)
  Receive Date: 20090616
  Receipt Date: 20090603
  Transmission Date: 20091009
  Serious: Yes (Other)
  Sender: FDA-Public Use
  Company Number: PHHY2009DE22397

PATIENT

DRUGS (1)
  1. LEPONEX [Suspect]

REACTIONS (2)
  - IMMUNOGLOBULINS DECREASED [None]
  - LUNG INFECTION [None]
